FAERS Safety Report 17139422 (Version 1)
Quarter: 2019Q4

REPORT INFORMATION
  Report Type: Spontaneous
  Country: US (occurrence: US)
  Receive Date: 20191210
  Receipt Date: 20191210
  Transmission Date: 20200122
  Serious: Yes (Death)
  Sender: FDA-Public Use
  Company Number: None

PATIENT
  Age: 69 Year
  Sex: Male

DRUGS (8)
  1. IMATNIB MES [Suspect]
     Active Substance: IMATINIB MESYLATE
     Indication: RESPIRATORY DISORDER
     Route: 048
     Dates: start: 20180201, end: 20191113
  2. LATANOPROST SOL 0.005% [Concomitant]
     Dates: start: 20191008, end: 20191113
  3. TAMSULOSIN CAP 0.4MG [Concomitant]
     Active Substance: TAMSULOSIN
     Dates: start: 20190812, end: 20191113
  4. AZELASTINE SPR 0.15% [Concomitant]
     Dates: start: 20191007, end: 20191113
  5. AMLOD/BENAZP CAP 5-20MG [Concomitant]
     Dates: start: 20190509, end: 20191113
  6. LATANOPROST SOL 0.005% [Concomitant]
     Dates: start: 20190628, end: 20191113
  7. TAMSULOSIN CAP 0.4MG [Concomitant]
     Active Substance: TAMSULOSIN
     Dates: start: 20190814, end: 20191113
  8. AMLOD/BENAZP CAP 5-20MG [Concomitant]
     Dates: start: 20191108, end: 20191113

REACTIONS (1)
  - Death [None]

NARRATIVE: CASE EVENT DATE: 20191113
